FAERS Safety Report 7809974-X (Version None)
Quarter: 2011Q4

REPORT INFORMATION
  Report Type: 
  Country: None (occurrence: None)
  Receive Date: 20111012
  Receipt Date: 20111007
  Transmission Date: 20120403
  Serious: Yes (Hospitalization)
  Sender: FDA-Public Use
  Company Number: PHHY2011IT89225

PATIENT
  Sex: Male

DRUGS (6)
  1. ZOMETA [Suspect]
     Indication: MULTIPLE MYELOMA
     Dosage: 4 MG
     Route: 042
     Dates: start: 20091122, end: 20100323
  2. VINCRISTINE [Concomitant]
     Dosage: 0.4 MG
     Route: 042
     Dates: start: 20090707, end: 20090929
  3. ZOMETA [Suspect]
     Dosage: 4 MG
     Route: 042
     Dates: start: 20101022, end: 20110415
  4. DOXORUBICIN HCL [Concomitant]
     Dosage: 18 MG FOR 2 DAYS
     Route: 042
     Dates: start: 20090707
  5. DEXAMETHASONE [Concomitant]
     Dosage: 40 MG 1ST AND 3RD CYCLE 6 DAYS, 2ND AND 4TH CYCLE 4 DAYS
     Route: 042
     Dates: start: 20090707, end: 20090929
  6. DOXORUBICIN HCL [Concomitant]
     Dosage: 17 MG FOR 2 DAYS
     Route: 042
     Dates: end: 20090929

REACTIONS (1)
  - OSTEONECROSIS OF JAW [None]
